FAERS Safety Report 23673517 (Version 1)
Quarter: 2024Q1

REPORT INFORMATION
  Report Type: Spontaneous
  Country: US (occurrence: None)
  Receive Date: 20240325
  Receipt Date: 20240325
  Transmission Date: 20240409
  Serious: Yes (Other)
  Sender: FDA-Public Use
  Company Number: None

PATIENT
  Age: 65 Year
  Sex: Female

DRUGS (11)
  1. STELARA [Suspect]
     Active Substance: USTEKINUMAB
     Indication: Psoriasis
     Route: 058
     Dates: start: 20240228, end: 20240229
  2. ZYRTEC [Concomitant]
  3. CYCLOSPORINE [Concomitant]
  4. FLUCCINONIDE 0.05% [Concomitant]
  5. MONTELUKAST 10MG [Concomitant]
  6. METFORMIN ER 500MG [Concomitant]
  7. VITAMIN D2 50,000 IU CAPS [Concomitant]
  8. WIXETA DISKUS INHALER [Concomitant]
  9. OMEPRAZOLE 40 MG [Concomitant]
  10. ZOLPIDEM ER 6.25 [Concomitant]
  11. LOSARTAN 50 MG [Concomitant]

REACTIONS (1)
  - Dizziness [None]

NARRATIVE: CASE EVENT DATE: 20240228
